FAERS Safety Report 7776444-7 (Version None)
Quarter: 2011Q3

REPORT INFORMATION
  Report Type: 
  Country: None (occurrence: None)
  Receive Date: 20110926
  Receipt Date: 20110916
  Transmission Date: 20111222
  Serious: Yes (Other)
  Sender: FDA-Public Use
  Company Number: US-JNJFOC-20110907389

PATIENT
  Age: 51 Year
  Sex: Male

DRUGS (3)
  1. RALTEGRAVIR [Suspect]
     Indication: HIV INFECTION
     Route: 065
  2. INTELENCE [Suspect]
     Indication: HIV INFECTION
     Route: 065
  3. DARUNAVIR ETHANOLATE [Suspect]
     Indication: HIV INFECTION
     Route: 065

REACTIONS (5)
  - FATIGUE [None]
  - DISTURBANCE IN ATTENTION [None]
  - CONFUSIONAL STATE [None]
  - ACTIVITIES OF DAILY LIVING IMPAIRED [None]
  - TREATMENT NONCOMPLIANCE [None]
